FAERS Safety Report 22074139 (Version 2)
Quarter: 2023Q1

REPORT INFORMATION
  Report Type: Report from Study
  Country: CA (occurrence: CA)
  Receive Date: 20230308
  Receipt Date: 20230309
  Transmission Date: 20230418
  Serious: Yes (Hospitalization, Other)
  Sender: FDA-Public Use
  Company Number: CA-009507513-2206CAN003631

PATIENT
  Sex: Female

DRUGS (10)
  1. PEMBROLIZUMAB [Suspect]
     Active Substance: PEMBROLIZUMAB
     Indication: Cervix carcinoma
     Dosage: 200 MILLIGRAM (MG), EVERY 3 WEEKS (Q3W)
     Route: 042
     Dates: start: 20220602, end: 20220602
  2. PEMBROLIZUMAB [Suspect]
     Active Substance: PEMBROLIZUMAB
     Dosage: 200 MILLIGRAM (MG), EVERY 3 WEEKS (Q3W)
     Route: 042
     Dates: start: 20220628, end: 20220628
  3. PEMBROLIZUMAB [Suspect]
     Active Substance: PEMBROLIZUMAB
     Dosage: 200 MILLIGRAM (MG), EVERY 3 WEEKS (Q3W)
     Route: 042
     Dates: start: 20220721, end: 20220721
  4. PEMBROLIZUMAB [Suspect]
     Active Substance: PEMBROLIZUMAB
     Dosage: 200 MILLIGRAM (MG), EVERY 3 WEEKS (Q3W)
     Route: 065
     Dates: start: 20220818, end: 20220818
  5. PEMBROLIZUMAB [Suspect]
     Active Substance: PEMBROLIZUMAB
     Dosage: 200 MILLIGRAM (MG), EVERY 3 WEEKS (Q3W)
     Route: 065
     Dates: start: 20220929, end: 20220929
  6. PEMBROLIZUMAB [Suspect]
     Active Substance: PEMBROLIZUMAB
     Dosage: 200MG IV/ Q3 WEEKS
     Route: 042
     Dates: start: 2022, end: 2022
  7. PEMBROLIZUMAB [Suspect]
     Active Substance: PEMBROLIZUMAB
     Dosage: 200MG IV/ Q3 WEEKS
     Route: 042
     Dates: start: 20221020, end: 20221020
  8. PEMBROLIZUMAB [Suspect]
     Active Substance: PEMBROLIZUMAB
     Dosage: 200MG IV/ Q3 WEEKS
     Route: 042
     Dates: start: 20221222, end: 20221222
  9. PEMBROLIZUMAB [Suspect]
     Active Substance: PEMBROLIZUMAB
     Dosage: 200MG IV/ Q3 WEEKS
     Route: 042
     Dates: start: 20230112, end: 20230112
  10. PEMBROLIZUMAB [Suspect]
     Active Substance: PEMBROLIZUMAB
     Dosage: 216ML/HR
     Route: 065
     Dates: start: 20230301, end: 20230301

REACTIONS (32)
  - Nephrostomy [Unknown]
  - Kidney infection [Unknown]
  - Immune-mediated adverse reaction [Not Recovered/Not Resolved]
  - Cancer pain [Not Recovered/Not Resolved]
  - Stoma site pain [Not Recovered/Not Resolved]
  - Disturbance in attention [Unknown]
  - Sleep disorder [Unknown]
  - Weight abnormal [Unknown]
  - Fear [Unknown]
  - Depressed mood [Unknown]
  - Anger [Unknown]
  - General physical condition abnormal [Unknown]
  - Frustration tolerance decreased [Unknown]
  - Anxiety [Unknown]
  - Somnolence [Unknown]
  - Stoma site infection [Not Recovered/Not Resolved]
  - Urinary tract infection [Unknown]
  - Vascular access complication [Unknown]
  - Memory impairment [Unknown]
  - Malaise [Unknown]
  - Neutrophil count decreased [Unknown]
  - Pain [Unknown]
  - Weight decreased [Unknown]
  - Fatigue [Unknown]
  - Nausea [Unknown]
  - Decreased appetite [Unknown]
  - Dyspnoea [Unknown]
  - Urinary tract infection [Unknown]
  - Product use issue [Unknown]
  - Product use issue [Unknown]
  - Product use issue [Unknown]
  - Inappropriate schedule of product administration [Unknown]

NARRATIVE: CASE EVENT DATE: 20220101
